FAERS Safety Report 15961291 (Version 1)
Quarter: 2019Q1

REPORT INFORMATION
  Report Type: Spontaneous
  Country: US (occurrence: US)
  Receive Date: 20190214
  Receipt Date: 20190214
  Transmission Date: 20190417
  Serious: No
  Sender: FDA-Public Use
  Company Number: US-PFIZER INC-2019065120

PATIENT
  Age: 46 Year
  Sex: Female

DRUGS (4)
  1. GENOTROPIN [Suspect]
     Active Substance: SOMATROPIN
     Indication: PITUITARY TUMOUR
  2. GENOTROPIN [Suspect]
     Active Substance: SOMATROPIN
     Indication: HYPOTHYROIDISM
     Dosage: 0.7 MG, DAILY
  3. GENOTROPIN [Suspect]
     Active Substance: SOMATROPIN
     Indication: BODY MASS INDEX INCREASED
  4. GENOTROPIN [Suspect]
     Active Substance: SOMATROPIN
     Indication: MAJOR DEPRESSION

REACTIONS (7)
  - Low density lipoprotein increased [Unknown]
  - Product use in unapproved indication [Unknown]
  - Vitamin D deficiency [Unknown]
  - Alanine aminotransferase increased [Unknown]
  - Blood triglycerides increased [Unknown]
  - High density lipoprotein decreased [Unknown]
  - Total cholesterol/HDL ratio increased [Unknown]

NARRATIVE: CASE EVENT DATE: 20180501
